FAERS Safety Report 18440372 (Version 1)
Quarter: 2020Q4

REPORT INFORMATION
  Report Type: Spontaneous
  Country: US (occurrence: US)
  Receive Date: 20201029
  Receipt Date: 20201029
  Transmission Date: 20210114
  Serious: No
  Sender: FDA-Public Use
  Company Number: None

PATIENT
  Age: 26 Year
  Sex: Male
  Weight: 59.85 kg

DRUGS (9)
  1. LUMIFY [Suspect]
     Active Substance: BRIMONIDINE TARTRATE
     Indication: ASTHENOPIA
     Dosage: ?          QUANTITY:1 DROP(S);?
     Route: 047
     Dates: start: 20201028, end: 20201028
  2. PRESERVATIVE-FREE EYE DROPS [Concomitant]
  3. DAILY MULTIVITAMIN [Concomitant]
     Active Substance: VITAMINS
  4. VITAMIN D [Concomitant]
     Active Substance: VITAMIN D NOS
  5. VITAMIN K [Concomitant]
     Active Substance: PHYTONADIONE
  6. 5-HTP [Concomitant]
  7. DEPO-TESTOSTERONE [Concomitant]
     Active Substance: TESTOSTERONE CYPIONATE
  8. VOLTAREN TOPICAL GEL [Concomitant]
  9. NASAL SALINE SPRAY [Concomitant]

REACTIONS (2)
  - Epistaxis [None]
  - Nasal discomfort [None]

NARRATIVE: CASE EVENT DATE: 20201028
